FAERS Safety Report 10093355 (Version 1)
Quarter: 2014Q2

REPORT INFORMATION
  Report Type: Spontaneous
  Country: US (occurrence: US)
  Receive Date: 20140421
  Receipt Date: 20140421
  Transmission Date: 20141212
  Serious: No
  Sender: FDA-Public Use
  Company Number: US-SA-2014SA015273

PATIENT
  Age: 14 Year
  Sex: Female

DRUGS (2)
  1. ALLEGRA ALLERGY, 12 HR [Suspect]
     Indication: OROPHARYNGEAL PAIN
     Dosage: TAKEN FROM- FEW DAYS AGO
     Route: 048
  2. MUCINEX [Suspect]
     Route: 065
     Dates: start: 20140203

REACTIONS (3)
  - Discomfort [Unknown]
  - Somnolence [Unknown]
  - Rhinorrhoea [Unknown]
